FAERS Safety Report 4454696-9 (Version None)
Quarter: 2004Q3

REPORT INFORMATION
  Report Type: 
  Country: None (occurrence: None)
  Receive Date: 20040920
  Receipt Date: 20040920
  Transmission Date: 20050211
  Serious: Yes (Life-Threatening, Hospitalization, Disabling, Other)
  Sender: FDA-Public Use
  Company Number: None

PATIENT
  Age: 34 Year
  Sex: Female
  Weight: 68.0396 kg

DRUGS (1)
  1. NOVANTRONE [Suspect]
     Indication: PROGRESSIVE MULTIPLE SCLEROSIS

REACTIONS (7)
  - CARDIAC VALVE DISEASE [None]
  - CARDIOGENIC SHOCK [None]
  - DIALYSIS [None]
  - EJECTION FRACTION DECREASED [None]
  - HEART TRANSPLANT [None]
  - HEPATIC FAILURE [None]
  - RENAL FAILURE [None]
